FAERS Safety Report 9254940 (Version 1)
Quarter: 2013Q2

REPORT INFORMATION
  Report Type: Spontaneous
  Country: US (occurrence: US)
  Receive Date: 20130425
  Receipt Date: 20130425
  Transmission Date: 20140414
  Serious: Yes (Hospitalization)
  Sender: FDA-Public Use
  Company Number: US-BAYER-2013-048845

PATIENT
  Age: 47 Year
  Sex: Female
  Weight: 71.2 kg

DRUGS (8)
  1. YASMIN [Suspect]
  2. YAZ [Suspect]
  3. TORADOL [Concomitant]
  4. FLEXERIL [Concomitant]
  5. SOLU-MEDROL [Concomitant]
  6. PROTONIX [Concomitant]
  7. XANAX [Concomitant]
  8. MORPHINE [Concomitant]

REACTIONS (2)
  - Pulmonary embolism [Recovered/Resolved]
  - Deep vein thrombosis [None]
